FAERS Safety Report 19578185 (Version 2)
Quarter: 2021Q3

REPORT INFORMATION
  Report Type: Spontaneous
  Country: DE (occurrence: DE)
  Receive Date: 20210719
  Receipt Date: 20210802
  Transmission Date: 20211014
  Serious: Yes (Death, Life-Threatening, Hospitalization, Other)
  Sender: FDA-Public Use
  Company Number: NVSC2021DE162789

PATIENT
  Age: 68 Year
  Sex: Male

DRUGS (3)
  1. METHYLPREDNISOLONE. [Suspect]
     Active Substance: METHYLPREDNISOLONE
     Indication: PEMPHIGOID
     Dosage: UNK, BID (28 MG?0?8 MG)
     Route: 065
  2. NICOTINAMIDE [Suspect]
     Active Substance: NIACINAMIDE
     Indication: PEMPHIGOID
     Dosage: 1 DF, UNKNOWN
     Route: 065
  3. DOXYCYCLINE. [Suspect]
     Active Substance: DOXYCYCLINE
     Indication: PEMPHIGOID
     Dosage: 1 DOSAGE FORM
     Route: 065

REACTIONS (9)
  - Pneumocystis jirovecii pneumonia [Fatal]
  - Klebsiella infection [Fatal]
  - Hepatotoxicity [Fatal]
  - Oedema peripheral [Fatal]
  - Acute respiratory distress syndrome [Fatal]
  - Aspergillus infection [Fatal]
  - Hypercapnia [Fatal]
  - Respiratory disorder [Fatal]
  - Intentional product use issue [Unknown]
